FAERS Safety Report 7170721-9 (Version None)
Quarter: 2010Q4

REPORT INFORMATION
  Report Type: 
  Country: None (occurrence: None)
  Receive Date: 20101206
  Receipt Date: 20101201
  Transmission Date: 20110411
  Serious: Yes (Hospitalization, Other)
  Sender: FDA-Public Use
  Company Number: 2010AC000576

PATIENT
  Age: 66 Year
  Sex: Male

DRUGS (37)
  1. DIGOXIN [Suspect]
     Indication: CARDIAC DISORDER
     Dosage: 0.125 MG DAILY, PO
     Route: 048
  2. DIGOXIN [Suspect]
     Dosage: 0.125 MG QD, PO
     Route: 048
     Dates: start: 20001001
  3. ALPRAZOLAM [Concomitant]
  4. HYDROCODONE BITARTRATE AND ACETAMINOPHEN [Concomitant]
  5. HUMULIN R [Concomitant]
  6. RANITIDINE [Concomitant]
  7. ISOSORBIDE DINITRATE [Concomitant]
  8. PRAVASTATIN [Concomitant]
  9. LISINOPRIL [Concomitant]
  10. METOPROLOL [Concomitant]
  11. FUROSEMIDE [Concomitant]
  12. SPIRONOLACTONE [Concomitant]
  13. DOXAZOSIN [Concomitant]
  14. KLOR-CON [Concomitant]
  15. RELION [Concomitant]
  16. HUMALOG [Concomitant]
  17. COLCHICINE [Concomitant]
  18. DEMADEX [Concomitant]
  19. ASPIRIN [Concomitant]
  20. KLONOPIN [Concomitant]
  21. MAG-OXIDE [Concomitant]
  22. MONOPRIL [Concomitant]
  23. NEXIUM [Concomitant]
  24. NITROGLYCERIN [Concomitant]
  25. PACERONE [Concomitant]
  26. PERCOCET [Concomitant]
  27. PRAVACHOL [Concomitant]
  28. SPIRONOLACTONE [Concomitant]
  29. VICODIN [Concomitant]
  30. AMIODARONE [Concomitant]
  31. DITROPAN [Concomitant]
  32. ULTRA-C [Concomitant]
  33. COLACE [Concomitant]
  34. DOXAZOSIN [Concomitant]
  35. ROZEREM [Concomitant]
  36. PRAVASTATIN [Concomitant]
  37. RANATIDINE [Concomitant]

REACTIONS (25)
  - ATRIOVENTRICULAR BLOCK FIRST DEGREE [None]
  - BASAL CELL CARCINOMA [None]
  - CARDIAC FAILURE [None]
  - CAROTID ARTERY STENOSIS [None]
  - DIABETES MELLITUS INADEQUATE CONTROL [None]
  - ELECTROCARDIOGRAM QT PROLONGED [None]
  - ELECTROCARDIOGRAM ST-T SEGMENT ABNORMAL [None]
  - GOUTY ARTHRITIS [None]
  - HYDRONEPHROSIS [None]
  - INSOMNIA [None]
  - INTERMITTENT CLAUDICATION [None]
  - ISCHAEMIC CARDIOMYOPATHY [None]
  - MITRAL VALVE INCOMPETENCE [None]
  - MULTIPLE INJURIES [None]
  - MYOCARDIAL INFARCTION [None]
  - NEPHROLITHIASIS [None]
  - NEPHROSCLEROSIS [None]
  - NOCTURIA [None]
  - OVERWEIGHT [None]
  - PERIPHERAL VASCULAR DISORDER [None]
  - SCAR [None]
  - TRICUSPID VALVE INCOMPETENCE [None]
  - URETERIC OBSTRUCTION [None]
  - VENTRICULAR EXTRASYSTOLES [None]
  - VERTEBRAL ARTERY OCCLUSION [None]
